FAERS Safety Report 11758116 (Version 1)
Quarter: 2015Q4

REPORT INFORMATION
  Report Type: Spontaneous
  Country: US (occurrence: US)
  Receive Date: 20151120
  Receipt Date: 20151120
  Transmission Date: 20160304
  Serious: Yes (Hospitalization)
  Sender: FDA-Public Use
  Company Number: US-SAGENTPRD-2015-US-000034

PATIENT
  Sex: Male

DRUGS (2)
  1. HEPARIN 2000 UNITS/1000 ML NORMAL SALINE [Concomitant]
  2. HEPARIN SODIUM INJECTION, MDV, 10 ML, 1000 UNIT/ML [Suspect]
     Active Substance: HEPARIN SODIUM
     Dosage: 29,000 UNITS TOTAL DOSE
     Route: 042
     Dates: start: 20151107

REACTIONS (4)
  - Heparin-induced thrombocytopenia [Unknown]
  - Shock [None]
  - Pulmonary hypertension [None]
  - Right ventricular dysfunction [None]

NARRATIVE: CASE EVENT DATE: 20151107
